FAERS Safety Report 4388915-4 (Version None)
Quarter: 2004Q2

REPORT INFORMATION
  Report Type: 
  Country: None (occurrence: None)
  Receive Date: 20040624
  Receipt Date: 20040614
  Transmission Date: 20050107
  Serious: Yes (Hospitalization)
  Sender: FDA-Public Use
  Company Number: TPA2004A00766

PATIENT
  Age: 41 Year
  Sex: Female

DRUGS (1)
  1. ACTOS [Suspect]
     Dosage: PER ORAL
     Route: 048

REACTIONS (6)
  - BLOOD GLUCOSE DECREASED [None]
  - GANGRENE [None]
  - LOCALISED INFECTION [None]
  - SWELLING [None]
  - TOE AMPUTATION [None]
  - WEIGHT INCREASED [None]
